FAERS Safety Report 19694969 (Version 1)
Quarter: 2021Q3

REPORT INFORMATION
  Report Type: Spontaneous
  Country: US (occurrence: US)
  Receive Date: 20210812
  Receipt Date: 20210812
  Transmission Date: 20211014
  Serious: No
  Sender: FDA-Public Use
  Company Number: NVSC2021US178946

PATIENT
  Sex: Male

DRUGS (1)
  1. HYDROCORTISONE,NEOMYCIN SULFATE,POLYMYCIN B SULPHATE [Suspect]
     Active Substance: HYDROCORTISONE\NEOMYCIN SULFATE\POLYMYXIN B SULFATE
     Indication: EAR INFECTION
     Dosage: (2 WEEKS, 4 TIMES A DAY)
     Route: 001
     Dates: start: 20210719

REACTIONS (2)
  - Product storage error [Unknown]
  - Ear discomfort [Unknown]
